FAERS Safety Report 5992326-5 (Version None)
Quarter: 2008Q4

REPORT INFORMATION
  Report Type: 
  Country: None (occurrence: None)
  Receive Date: 20081202
  Receipt Date: 20080227
  Transmission Date: 20090506
  Serious: Yes (Other)
  Sender: FDA-Public Use
  Company Number: WAES 0705USA04189

PATIENT
  Age: 63 Year
  Sex: Female
  Weight: 61.6892 kg

DRUGS (5)
  1. FOSAMAX [Suspect]
     Indication: OSTEOPOROSIS
     Dosage: 5 MG/DAILY/PO
     Route: 048
     Dates: start: 20011018
  2. FOSAMAX [Suspect]
     Indication: OSTEOPOROSIS
     Dosage: 10 MG/DAILY/PO ; 10 MG/DAILY/PO
     Route: 048
     Dates: start: 20020201, end: 20031001
  3. FOSAMAX [Suspect]
     Indication: OSTEOPOROSIS
     Dosage: 10 MG/DAILY/PO ; 10 MG/DAILY/PO
     Route: 048
     Dates: start: 20031201, end: 20060101
  4. FOSAMAX [Suspect]
     Indication: OSTEOPOROSIS
     Dosage: 70 MG/PO
     Route: 048
     Dates: start: 20060101, end: 20060501
  5. THYROXIN [Concomitant]

REACTIONS (15)
  - ANXIETY [None]
  - DENTAL CARIES [None]
  - DEPRESSION [None]
  - EDENTULOUS [None]
  - NAUSEA [None]
  - OEDEMA MOUTH [None]
  - ORAL PAIN [None]
  - OSTEOARTHRITIS [None]
  - OSTEONECROSIS [None]
  - PAIN [None]
  - PAIN IN JAW [None]
  - RESORPTION BONE INCREASED [None]
  - TOOTH DISORDER [None]
  - TOOTH LOSS [None]
  - VOMITING [None]
